FAERS Safety Report 8286467-X (Version None)
Quarter: 2012Q2

REPORT INFORMATION
  Report Type: 
  Country: None (occurrence: None)
  Receive Date: 20120416
  Receipt Date: 20120411
  Transmission Date: 20120825
  Serious: Yes (Death)
  Sender: FDA-Public Use
  Company Number: JP-PFIZER INC-2012090662

PATIENT
  Age: 78 Year
  Sex: Female

DRUGS (9)
  1. LYRICA [Concomitant]
     Indication: POST HERPETIC NEURALGIA
     Dosage: 150 MG, UNK
     Route: 048
     Dates: end: 20120330
  2. YOKUKAN-SAN [Concomitant]
     Indication: NEUROSIS
     Dosage: 5 G, UNK
     Route: 048
     Dates: end: 20120330
  3. SUTENT [Suspect]
     Indication: GASTROINTESTINAL STROMAL TUMOUR
     Dosage: 37.5 MG/DAY
     Route: 048
     Dates: start: 20120319, end: 20120330
  4. FAMOTIDINE [Concomitant]
     Indication: GASTRITIS
     Dosage: 40 MG, UNK
     Route: 048
     Dates: end: 20120330
  5. FERROUS FUMARATE [Concomitant]
     Indication: ANAEMIA
     Dosage: 100 MG, UNK
     Route: 048
     Dates: end: 20120330
  6. VITAMIN B12 [Concomitant]
     Indication: NEURALGIA
     Dosage: 1500 UG, UNK
     Route: 048
     Dates: end: 20120330
  7. LEUCON [Concomitant]
     Indication: WHITE BLOOD CELL COUNT DECREASED
     Dosage: 30 MG, UNK
     Route: 048
     Dates: end: 20120330
  8. NIFEDIPINE [Concomitant]
     Indication: HYPERTENSION
     Dosage: 40 MG, UNK
     Route: 048
     Dates: end: 20120330
  9. AMITRIPTYLINE HCL [Concomitant]
     Indication: NEURALGIA
     Dosage: 20 MG, UNK
     Route: 048
     Dates: end: 20120330

REACTIONS (6)
  - CEREBRAL INFARCTION [None]
  - GASTROINTESTINAL STROMAL TUMOUR [None]
  - HEPATIC FAILURE [None]
  - DISEASE PROGRESSION [None]
  - HYPERAMMONAEMIA [None]
  - THROMBOCYTOPENIA [None]
